FAERS Safety Report 12194570 (Version 1)
Quarter: 2016Q1

REPORT INFORMATION
  Report Type: Spontaneous
  Country: US (occurrence: None)
  Receive Date: 20160318
  Receipt Date: 20160318
  Transmission Date: 20160526
  Serious: Yes (Other)
  Sender: FDA-Public Use
  Company Number: None

PATIENT
  Age: 82 Year
  Sex: Female
  Weight: 83.92 kg

DRUGS (15)
  1. ASPIRIN. [Concomitant]
     Active Substance: ASPIRIN
  2. VENLAFAXINE [Concomitant]
     Active Substance: VENLAFAXINE HYDROCHLORIDE
  3. CALCIUM [Concomitant]
     Active Substance: CALCIUM
  4. VITAMIN D [Concomitant]
     Active Substance: CHOLECALCIFEROL
  5. ARMOUR THYROID [Concomitant]
     Active Substance: THYROID, PORCINE
  6. BENICAR [Concomitant]
     Active Substance: OLMESARTAN MEDOXOMIL
  7. ACYCLOVIR. [Concomitant]
     Active Substance: ACYCLOVIR
  8. OMEPRAZOLE. [Concomitant]
     Active Substance: OMEPRAZOLE
  9. MYRBETRIQ [Suspect]
     Active Substance: MIRABEGRON
     Indication: HYPERTONIC BLADDER
     Dosage: 7 PILLS ONCE DAILY BY MOUTH
     Route: 048
     Dates: start: 20150217, end: 20150225
  10. CENTRUM [Concomitant]
     Active Substance: VITAMINS
  11. FENOFIBRATE. [Concomitant]
     Active Substance: FENOFIBRATE
  12. MYRBETRIQ [Suspect]
     Active Substance: MIRABEGRON
     Indication: INCONTINENCE
     Dosage: 7 PILLS ONCE DAILY BY MOUTH
     Route: 048
     Dates: start: 20150217, end: 20150225
  13. COLACE [Concomitant]
     Active Substance: DOCUSATE SODIUM
  14. FISH OIL [Concomitant]
     Active Substance: FISH OIL
  15. METAMUCIL [Concomitant]
     Active Substance: PLANTAGO SEED

REACTIONS (8)
  - Decreased appetite [None]
  - Insomnia [None]
  - Constipation [None]
  - Malaise [None]
  - Nausea [None]
  - Weight decreased [None]
  - Headache [None]
  - Feeling of body temperature change [None]

NARRATIVE: CASE EVENT DATE: 20160225
